FAERS Safety Report 5003495-8 (Version None)
Quarter: 2006Q2

REPORT INFORMATION
  Report Type: 
  Country: None (occurrence: None)
  Receive Date: 20060516
  Receipt Date: 20060511
  Transmission Date: 20061013
  Serious: Yes (Life-Threatening, Hospitalization)
  Sender: FDA-Public Use
  Company Number: US-BOEHRINGER INGELHEIM PHARMACEUTICALS, INC.-2006-BP-05387BP

PATIENT
  Sex: Male
  Weight: 103.42 kg

DRUGS (9)
  1. CLONIDINE HCL [Suspect]
     Route: 048
     Dates: start: 20020101
  2. ORAVESCENT FENTANYL CITRATE (CEP-2560B) [Suspect]
     Indication: PAIN
     Dates: start: 20050523, end: 20060414
  3. MORPHINE SULFATE [Suspect]
     Route: 048
     Dates: start: 20020101
  4. HYDROMORPHONE HYDROCHLORIDE [Suspect]
     Dates: start: 20020101
  5. NORTRIPTYLINE HCL [Suspect]
     Indication: MIGRAINE
     Route: 048
     Dates: start: 20050805
  6. LISINOPRIL [Suspect]
     Indication: HYPERTENSION
     Route: 048
     Dates: start: 20060410
  7. TEMAZEPAM [Concomitant]
     Dates: start: 20050808
  8. DIVALOPROEX SODIUM [Concomitant]
     Dates: start: 20060330
  9. LANSOPRAZOLE [Concomitant]
     Dates: start: 20060410

REACTIONS (2)
  - OVERDOSE [None]
  - SUICIDE ATTEMPT [None]
